FAERS Safety Report 6615175-3 (Version None)
Quarter: 2010Q1

REPORT INFORMATION
  Report Type: 
  Country: None (occurrence: None)
  Receive Date: 20100305
  Receipt Date: 20100222
  Transmission Date: 20100710
  Serious: Yes (Hospitalization, Other)
  Sender: FDA-Public Use
  Company Number: PHHY2009JP52107

PATIENT
  Sex: Female

DRUGS (5)
  1. TEGRETOL [Suspect]
     Indication: GRAND MAL CONVULSION
     Dosage: 300 MG/DAY
     Route: 048
  2. SOLFA [Suspect]
     Route: 048
  3. PHENYTOIN [Suspect]
     Indication: GRAND MAL CONVULSION
     Dosage: 500MG
     Route: 048
  4. PHENOBARBITAL [Suspect]
     Indication: GRAND MAL CONVULSION
     Dosage: 250 MG
     Route: 048
  5. CLONAZEPAM [Suspect]
     Indication: GRAND MAL CONVULSION
     Dosage: 1.5 MG
     Route: 048

REACTIONS (5)
  - ANTICONVULSANT DRUG LEVEL INCREASED [None]
  - BREAST CANCER [None]
  - GRAND MAL CONVULSION [None]
  - MASTECTOMY [None]
  - VOMITING [None]
